FAERS Safety Report 7343726-2 (Version None)
Quarter: 2011Q1

REPORT INFORMATION
  Report Type: 
  Country: None (occurrence: None)
  Receive Date: 20110310
  Receipt Date: 20101018
  Transmission Date: 20110831
  Serious: No
  Sender: FDA-Public Use
  Company Number: A0897888A

PATIENT
  Age: 50 Year
  Sex: Female

DRUGS (4)
  1. NICOTINE POLACRILEX [Suspect]
  2. COMMIT [Suspect]
  3. NICORETTE (MINT) [Suspect]
  4. NICOTINE POLACRILEX [Suspect]

REACTIONS (2)
  - DYSPEPSIA [None]
  - DRUG ADMINISTRATION ERROR [None]
